FAERS Safety Report 7763719-0 (Version None)
Quarter: 2011Q3

REPORT INFORMATION
  Report Type: 
  Country: None (occurrence: None)
  Receive Date: 20110921
  Receipt Date: 20110913
  Transmission Date: 20111222
  Serious: Yes (Other)
  Sender: FDA-Public Use
  Company Number: US-AMGEN-USASP2011046997

PATIENT
  Age: 63 Year
  Sex: Female

DRUGS (1)
  1. PROLIA [Suspect]
     Indication: OSTEOPOROSIS POSTMENOPAUSAL
     Dates: start: 20110831

REACTIONS (5)
  - BACK PAIN [None]
  - INCONTINENCE [None]
  - MUSCULAR WEAKNESS [None]
  - APHAGIA [None]
  - MOBILITY DECREASED [None]
